FAERS Safety Report 4812780-1 (Version None)
Quarter: 2005Q4

REPORT INFORMATION
  Report Type: 
  Country: None (occurrence: None)
  Receive Date: 20051028
  Receipt Date: 20041117
  Transmission Date: 20060501
  Serious: No
  Sender: FDA-Public Use
  Company Number: US-GLAXOSMITHKLINE-A0534302A

PATIENT
  Age: 73 Year
  Sex: Female

DRUGS (9)
  1. ADVAIR DISKUS 100/50 [Suspect]
     Indication: ASTHMA
     Dosage: 1PUFF TWICE PER DAY
     Route: 055
     Dates: start: 20030901, end: 20041101
  2. AZOPT EYE DROPS [Concomitant]
  3. PILOCARPINE [Concomitant]
  4. XALATAN [Concomitant]
  5. UNSPECIFIED MEDICATION [Concomitant]
  6. CENESTIN [Concomitant]
  7. KLOR-CON [Concomitant]
  8. ADVIL [Concomitant]
  9. COMBIVENT [Concomitant]
     Indication: ASTHMA

REACTIONS (1)
  - INTRAOCULAR PRESSURE INCREASED [None]
